FAERS Safety Report 8581534-5 (Version None)
Quarter: 2012Q3

REPORT INFORMATION
  Report Type: 
  Country: None (occurrence: None)
  Receive Date: 20120809
  Receipt Date: 20120802
  Transmission Date: 20120928
  Serious: Yes (Other)
  Sender: FDA-Public Use
  Company Number: FR-TEVA-271609ISR

PATIENT
  Sex: Female

DRUGS (5)
  1. SULFARLEM [Concomitant]
     Indication: DRY MOUTH
     Dosage: 2 DOSAGE FORMS DAILY;
     Route: 048
     Dates: start: 20010101
  2. PAROXETINE HCL [Concomitant]
     Indication: ANTIDEPRESSANT THERAPY
     Dosage: 20 MILLIGRAM DAILY;
     Route: 048
     Dates: start: 20020101
  3. LAMICTAL [Concomitant]
     Indication: GAIT DISTURBANCE
     Dosage: 45 MILLIGRAM DAILY;
     Route: 048
     Dates: start: 20100901
  4. COPAXONE [Suspect]
     Indication: MULTIPLE SCLEROSIS
     Dosage: 20 MILLIGRAM DAILY;
     Dates: start: 20070701
  5. DRUG NOS [Concomitant]
     Indication: INCONTINENCE
     Dosage: 2 DOSAGE FORMS DAILY;
     Route: 048
     Dates: start: 20080101

REACTIONS (21)
  - DYSPNOEA [None]
  - TACHYCARDIA [None]
  - MUSCLE SPASMS [None]
  - ABDOMINAL PAIN [None]
  - ERYTHEMA [None]
  - BLOOD PRESSURE DECREASED [None]
  - PALLOR [None]
  - BALANCE DISORDER [None]
  - URINARY INCONTINENCE [None]
  - RESPIRATORY DISORDER [None]
  - NAUSEA [None]
  - MALAISE [None]
  - SWELLING FACE [None]
  - FALL [None]
  - PARAESTHESIA [None]
  - NASAL CONGESTION [None]
  - APHASIA [None]
  - EYELID OEDEMA [None]
  - DIARRHOEA [None]
  - MICTURITION URGENCY [None]
  - CHILLS [None]
